FAERS Safety Report 11144305 (Version 1)
Quarter: 2015Q2

REPORT INFORMATION
  Report Type: Spontaneous
  Country: US (occurrence: None)
  Receive Date: 20150526
  Receipt Date: 20150526
  Transmission Date: 20150821
  Serious: Yes (Life-Threatening, Disabling)
  Sender: FDA-Public Use
  Company Number: None

PATIENT
  Age: 34 Year
  Sex: Female
  Weight: 95.26 kg

DRUGS (1)
  1. FANAPT [Suspect]
     Active Substance: ILOPERIDONE
     Indication: SCHIZOPHRENIA
     Dosage: HALF PILL
     Route: 048
     Dates: start: 20131007, end: 20131018

REACTIONS (6)
  - Faeces discoloured [None]
  - Insomnia [None]
  - Chest pain [None]
  - Hypertension [None]
  - Heart rate increased [None]
  - Diarrhoea [None]

NARRATIVE: CASE EVENT DATE: 20131007
